FAERS Safety Report 4551200-1 (Version None)
Quarter: 2005Q1

REPORT INFORMATION
  Report Type: 
  Country: None (occurrence: None)
  Receive Date: 20050106
  Receipt Date: 20041222
  Transmission Date: 20050727
  Serious: Yes (Hospitalization)
  Sender: FDA-Public Use
  Company Number: 2004-DE-06326BY

PATIENT
  Age: 52 Year
  Sex: Male

DRUGS (9)
  1. MICARDIS HCT [Suspect]
     Indication: HYPERTENSION
     Dosage: PO
     Route: 048
  2. KINZALMONO (TELMISARTAN) (NR) (TELMISARTAN) [Suspect]
     Indication: HYPERTENSION
     Dosage: 80 MG PO
     Route: 048
  3. ASS (NR) [Concomitant]
  4. SIMVASTATIN (SIMVASTATIN) (NR) [Concomitant]
  5. ENALAPRIL (ENALAPRIL) (NR) [Concomitant]
  6. DILATREND (CARVEDILOL) (NR) [Concomitant]
  7. FUROSEMID (FUROSEMIDE) (NR) [Concomitant]
  8. PLAVIX (CLOPIDOGREL SULFATE) (NR) [Concomitant]
  9. HCT (NR) [Concomitant]

REACTIONS (1)
  - TRANSIENT ISCHAEMIC ATTACK [None]
